FAERS Safety Report 4716700-X (Version None)
Quarter: 2005Q3

REPORT INFORMATION
  Report Type: 
  Country: None (occurrence: None)
  Receive Date: 20050714
  Receipt Date: 20050705
  Transmission Date: 20060218
  Serious: Yes (Hospitalization, Other)
  Sender: FDA-Public Use
  Company Number: 2005097190

PATIENT
  Age: 61 Year
  Sex: Female
  Weight: 52.1637 kg

DRUGS (4)
  1. LIPITOR [Suspect]
     Indication: BLOOD CHOLESTEROL INCREASED
     Dosage: 10 MG (10 MG, 1 IN 1 D), ORAL
     Route: 048
     Dates: end: 20050630
  2. ZOCOR [Suspect]
     Indication: BLOOD CHOLESTEROL INCREASED
     Dosage: ORAL
     Route: 048
  3. TIRCOR (FENOFIBRATE) [Suspect]
     Indication: BLOOD CHOLESTEROL INCREASED
     Dosage: ORAL
     Route: 048
  4. TYLENOL (PARACETAMOL) [Concomitant]

REACTIONS (6)
  - DRUG INEFFECTIVE [None]
  - FATIGUE [None]
  - HIGH DENSITY LIPOPROTEIN DECREASED [None]
  - INSOMNIA [None]
  - MYALGIA [None]
  - TRIGGER FINGER [None]
